FAERS Safety Report 9523305 (Version 3)
Quarter: 2013Q4

REPORT INFORMATION
  Report Type: Report from Study
  Country: CA (occurrence: CA)
  Receive Date: 20130913
  Receipt Date: 20131015
  Transmission Date: 20140711
  Serious: Yes (Other)
  Sender: FDA-Public Use
  Company Number: CA-ROCHE-1265945

PATIENT
  Age: 60 Year
  Sex: Female
  Weight: 74.8 kg

DRUGS (13)
  1. ACTEMRA [Suspect]
     Indication: RHEUMATOID ARTHRITIS
     Route: 042
     Dates: start: 20120816, end: 20121031
  2. ACTEMRA [Suspect]
     Route: 042
     Dates: start: 20121031
  3. RITUXAN [Suspect]
     Indication: RHEUMATOID ARTHRITIS
     Dosage: LAST DOSE OF RITUXIMAB WAS ON 25/JAN/2013.
     Route: 042
     Dates: start: 20130111
  4. RITUXAN [Suspect]
     Route: 042
     Dates: start: 20131002
  5. LEVOTHYROXINE [Concomitant]
  6. METHOTREXATE [Concomitant]
  7. PREVACID [Concomitant]
  8. FOLIC ACID [Concomitant]
  9. IBUPROFEN [Concomitant]
  10. RESTASIS [Concomitant]
  11. PREDNISONE [Concomitant]
     Route: 065
  12. PREDNISONE [Concomitant]
     Route: 065
  13. STATEX (CANADA) [Concomitant]

REACTIONS (9)
  - Nerve compression [Not Recovered/Not Resolved]
  - Carpal tunnel syndrome [Not Recovered/Not Resolved]
  - Peripheral nerve injury [Not Recovered/Not Resolved]
  - Urinary tract infection [Unknown]
  - Rheumatoid arthritis [Not Recovered/Not Resolved]
  - Injection site swelling [Recovered/Resolved]
  - Injection site bruising [Recovered/Resolved]
  - Ear discomfort [Recovered/Resolved]
  - Oropharyngeal pain [Recovered/Resolved]
